FAERS Safety Report 9462408 (Version 3)
Quarter: 2013Q4

REPORT INFORMATION
  Report Type: Spontaneous
  Country: SI (occurrence: SI)
  Receive Date: 20130816
  Receipt Date: 20131227
  Transmission Date: 20140711
  Serious: Yes (Other)
  Sender: FDA-Public Use
  Company Number: PHHY2013SI086463

PATIENT
  Sex: Female

DRUGS (1)
  1. PROPRANOLOL [Suspect]
     Indication: HYPERTENSION
     Route: 048

REACTIONS (14)
  - Cough [Unknown]
  - Urticaria [Unknown]
  - Lung disorder [Unknown]
  - Lacrimation increased [Unknown]
  - Nervousness [Unknown]
  - Rhinorrhoea [Unknown]
  - Memory impairment [Unknown]
  - Anxiety [Unknown]
  - Alopecia [Unknown]
  - Hyperhidrosis [Unknown]
  - Peripheral coldness [Unknown]
  - Paraesthesia [Unknown]
  - Hypoaesthesia [Unknown]
  - Tremor [Unknown]
